FAERS Safety Report 8757689 (Version 1)
Quarter: 2012Q4

REPORT INFORMATION
  Report Type: 
  Country: DE (occurrence: DE)
  Receive Date: 20120828
  Receipt Date: 20120828
  Transmission Date: 20130627
  Serious: Yes (Other)
  Sender: FDA-Public Use
  Company Number: DE-BAYER-2011-016693

PATIENT
  Age: 49 Year
  Sex: Male

DRUGS (3)
  1. MAGNEVIST [Suspect]
     Dosage: 15 ml, ONCE
     Dates: start: 2001
  2. OMNISCAN [Suspect]
     Indication: NUCLEAR MAGNETIC RESONANCE IMAGING
     Dosage: 15 ml, ONCE
     Dates: start: 2004
  3. OMNISCAN [Suspect]
     Indication: PARATHYROID TUMOUR BENIGN

REACTIONS (4)
  - Nephrogenic systemic fibrosis [Recovering/Resolving]
  - Skin induration [Recovering/Resolving]
  - Musculoskeletal pain [Recovering/Resolving]
  - Induration [Recovering/Resolving]
